FAERS Safety Report 20463051 (Version 2)
Quarter: 2023Q1

REPORT INFORMATION
  Report Type: Report from Study
  Country: IN (occurrence: None)
  Receive Date: 20220211
  Receipt Date: 20230120
  Transmission Date: 20230418
  Serious: Yes (Death, Hospitalization)
  Sender: FDA-Public Use
  Company Number: 2022A031292

PATIENT
  Age: 20456 Day
  Sex: Male

DRUGS (87)
  1. PEMETREXED [Suspect]
     Active Substance: PEMETREXED
     Indication: Non-small cell lung cancer
     Route: 042
     Dates: start: 20201210, end: 20201210
  2. PEMETREXED [Suspect]
     Active Substance: PEMETREXED
     Indication: EGFR gene mutation
     Route: 042
     Dates: start: 20201210, end: 20201210
  3. PEMETREXED [Suspect]
     Active Substance: PEMETREXED
     Indication: Non-small cell lung cancer
     Route: 042
     Dates: start: 20201231, end: 20201231
  4. PEMETREXED [Suspect]
     Active Substance: PEMETREXED
     Indication: EGFR gene mutation
     Route: 042
     Dates: start: 20201231, end: 20201231
  5. PEMETREXED [Suspect]
     Active Substance: PEMETREXED
     Indication: Non-small cell lung cancer
     Route: 042
     Dates: start: 20210122, end: 20210122
  6. PEMETREXED [Suspect]
     Active Substance: PEMETREXED
     Indication: EGFR gene mutation
     Route: 042
     Dates: start: 20210122, end: 20210122
  7. PEMETREXED [Suspect]
     Active Substance: PEMETREXED
     Indication: Non-small cell lung cancer
     Route: 042
     Dates: start: 20210226, end: 20210226
  8. PEMETREXED [Suspect]
     Active Substance: PEMETREXED
     Indication: EGFR gene mutation
     Route: 042
     Dates: start: 20210226, end: 20210226
  9. PEMETREXED [Suspect]
     Active Substance: PEMETREXED
     Indication: Non-small cell lung cancer
     Route: 042
     Dates: start: 20210409, end: 20210409
  10. PEMETREXED [Suspect]
     Active Substance: PEMETREXED
     Indication: EGFR gene mutation
     Route: 042
     Dates: start: 20210409, end: 20210409
  11. PEMETREXED [Suspect]
     Active Substance: PEMETREXED
     Indication: Non-small cell lung cancer
     Route: 042
     Dates: start: 20210430, end: 20210430
  12. PEMETREXED [Suspect]
     Active Substance: PEMETREXED
     Indication: EGFR gene mutation
     Route: 042
     Dates: start: 20210430, end: 20210430
  13. PEMETREXED [Suspect]
     Active Substance: PEMETREXED
     Indication: Non-small cell lung cancer
     Route: 042
     Dates: start: 20210521, end: 20210521
  14. PEMETREXED [Suspect]
     Active Substance: PEMETREXED
     Indication: EGFR gene mutation
     Route: 042
     Dates: start: 20210521, end: 20210521
  15. PEMETREXED [Suspect]
     Active Substance: PEMETREXED
     Indication: Non-small cell lung cancer
     Route: 042
     Dates: start: 20210702, end: 20210702
  16. PEMETREXED [Suspect]
     Active Substance: PEMETREXED
     Indication: EGFR gene mutation
     Route: 042
     Dates: start: 20210702, end: 20210702
  17. PEMETREXED [Suspect]
     Active Substance: PEMETREXED
     Indication: Non-small cell lung cancer
     Route: 042
     Dates: start: 20210723, end: 20210723
  18. PEMETREXED [Suspect]
     Active Substance: PEMETREXED
     Indication: EGFR gene mutation
     Route: 042
     Dates: start: 20210723, end: 20210723
  19. PEMETREXED [Suspect]
     Active Substance: PEMETREXED
     Indication: Non-small cell lung cancer
     Route: 042
     Dates: start: 20210813, end: 20210813
  20. PEMETREXED [Suspect]
     Active Substance: PEMETREXED
     Indication: EGFR gene mutation
     Route: 042
     Dates: start: 20210813, end: 20210813
  21. PEMETREXED [Suspect]
     Active Substance: PEMETREXED
     Indication: Non-small cell lung cancer
     Route: 042
     Dates: start: 20210903, end: 20210903
  22. PEMETREXED [Suspect]
     Active Substance: PEMETREXED
     Indication: EGFR gene mutation
     Route: 042
     Dates: start: 20210903, end: 20210903
  23. PEMETREXED [Suspect]
     Active Substance: PEMETREXED
     Indication: Non-small cell lung cancer
     Route: 042
     Dates: start: 20210924, end: 20210924
  24. PEMETREXED [Suspect]
     Active Substance: PEMETREXED
     Indication: EGFR gene mutation
     Route: 042
     Dates: start: 20210924, end: 20210924
  25. PEMETREXED [Suspect]
     Active Substance: PEMETREXED
     Indication: Non-small cell lung cancer
     Route: 042
     Dates: start: 20211018, end: 20211018
  26. PEMETREXED [Suspect]
     Active Substance: PEMETREXED
     Indication: EGFR gene mutation
     Route: 042
     Dates: start: 20211018, end: 20211018
  27. PEMETREXED [Suspect]
     Active Substance: PEMETREXED
     Indication: Non-small cell lung cancer
     Route: 042
     Dates: start: 20211108, end: 20211108
  28. PEMETREXED [Suspect]
     Active Substance: PEMETREXED
     Indication: EGFR gene mutation
     Route: 042
     Dates: start: 20211108, end: 20211108
  29. PEMETREXED [Suspect]
     Active Substance: PEMETREXED
     Indication: Non-small cell lung cancer
     Route: 042
     Dates: start: 20211129, end: 20211129
  30. PEMETREXED [Suspect]
     Active Substance: PEMETREXED
     Indication: EGFR gene mutation
     Route: 042
     Dates: start: 20211129, end: 20211129
  31. PEMETREXED [Suspect]
     Active Substance: PEMETREXED
     Indication: Non-small cell lung cancer
     Route: 042
     Dates: start: 20211220, end: 20211220
  32. PEMETREXED [Suspect]
     Active Substance: PEMETREXED
     Indication: EGFR gene mutation
     Route: 042
     Dates: start: 20211220, end: 20211220
  33. PEMETREXED [Suspect]
     Active Substance: PEMETREXED
     Indication: Non-small cell lung cancer
     Route: 042
     Dates: start: 20220110, end: 20220110
  34. PEMETREXED [Suspect]
     Active Substance: PEMETREXED
     Indication: EGFR gene mutation
     Route: 042
     Dates: start: 20220110, end: 20220110
  35. OSIMERTINIB [Suspect]
     Active Substance: OSIMERTINIB
     Indication: Non-small cell lung cancer
     Route: 048
     Dates: start: 20201210, end: 20201215
  36. OSIMERTINIB [Suspect]
     Active Substance: OSIMERTINIB
     Indication: EGFR gene mutation
     Route: 048
     Dates: start: 20201210, end: 20201215
  37. OSIMERTINIB [Suspect]
     Active Substance: OSIMERTINIB
     Indication: Non-small cell lung cancer
     Route: 048
     Dates: start: 20201221, end: 20201230
  38. OSIMERTINIB [Suspect]
     Active Substance: OSIMERTINIB
     Indication: EGFR gene mutation
     Route: 048
     Dates: start: 20201221, end: 20201230
  39. OSIMERTINIB [Suspect]
     Active Substance: OSIMERTINIB
     Indication: Non-small cell lung cancer
     Route: 048
     Dates: start: 20201231, end: 20210121
  40. OSIMERTINIB [Suspect]
     Active Substance: OSIMERTINIB
     Indication: EGFR gene mutation
     Route: 048
     Dates: start: 20201231, end: 20210121
  41. OSIMERTINIB [Suspect]
     Active Substance: OSIMERTINIB
     Indication: Non-small cell lung cancer
     Route: 048
     Dates: start: 20210122, end: 20210211
  42. OSIMERTINIB [Suspect]
     Active Substance: OSIMERTINIB
     Indication: EGFR gene mutation
     Route: 048
     Dates: start: 20210122, end: 20210211
  43. OSIMERTINIB [Suspect]
     Active Substance: OSIMERTINIB
     Indication: Non-small cell lung cancer
     Route: 048
     Dates: start: 20210226, end: 20210318
  44. OSIMERTINIB [Suspect]
     Active Substance: OSIMERTINIB
     Indication: EGFR gene mutation
     Route: 048
     Dates: start: 20210226, end: 20210318
  45. OSIMERTINIB [Suspect]
     Active Substance: OSIMERTINIB
     Indication: Non-small cell lung cancer
     Route: 048
     Dates: start: 20210319, end: 20210408
  46. OSIMERTINIB [Suspect]
     Active Substance: OSIMERTINIB
     Indication: EGFR gene mutation
     Route: 048
     Dates: start: 20210319, end: 20210408
  47. OSIMERTINIB [Suspect]
     Active Substance: OSIMERTINIB
     Indication: Non-small cell lung cancer
     Route: 048
     Dates: start: 20210409, end: 20210429
  48. OSIMERTINIB [Suspect]
     Active Substance: OSIMERTINIB
     Indication: EGFR gene mutation
     Route: 048
     Dates: start: 20210409, end: 20210429
  49. OSIMERTINIB [Suspect]
     Active Substance: OSIMERTINIB
     Indication: Non-small cell lung cancer
     Route: 048
     Dates: start: 20210430, end: 20210610
  50. OSIMERTINIB [Suspect]
     Active Substance: OSIMERTINIB
     Indication: EGFR gene mutation
     Route: 048
     Dates: start: 20210430, end: 20210610
  51. OSIMERTINIB [Suspect]
     Active Substance: OSIMERTINIB
     Indication: Non-small cell lung cancer
     Route: 048
     Dates: start: 20210611, end: 20210722
  52. OSIMERTINIB [Suspect]
     Active Substance: OSIMERTINIB
     Indication: EGFR gene mutation
     Route: 048
     Dates: start: 20210611, end: 20210722
  53. OSIMERTINIB [Suspect]
     Active Substance: OSIMERTINIB
     Indication: Non-small cell lung cancer
     Route: 048
     Dates: start: 20210723, end: 20210902
  54. OSIMERTINIB [Suspect]
     Active Substance: OSIMERTINIB
     Indication: EGFR gene mutation
     Route: 048
     Dates: start: 20210723, end: 20210902
  55. OSIMERTINIB [Suspect]
     Active Substance: OSIMERTINIB
     Indication: Non-small cell lung cancer
     Route: 048
     Dates: start: 20210903, end: 20211017
  56. OSIMERTINIB [Suspect]
     Active Substance: OSIMERTINIB
     Indication: EGFR gene mutation
     Route: 048
     Dates: start: 20210903, end: 20211017
  57. OSIMERTINIB [Suspect]
     Active Substance: OSIMERTINIB
     Indication: Non-small cell lung cancer
     Route: 048
     Dates: start: 20211018, end: 20211128
  58. OSIMERTINIB [Suspect]
     Active Substance: OSIMERTINIB
     Indication: EGFR gene mutation
     Route: 048
     Dates: start: 20211018, end: 20211128
  59. OSIMERTINIB [Suspect]
     Active Substance: OSIMERTINIB
     Indication: Non-small cell lung cancer
     Route: 048
     Dates: start: 20211129, end: 20220115
  60. OSIMERTINIB [Suspect]
     Active Substance: OSIMERTINIB
     Indication: EGFR gene mutation
     Route: 048
     Dates: start: 20211129, end: 20220115
  61. OSIMERTINIB [Suspect]
     Active Substance: OSIMERTINIB
     Indication: Non-small cell lung cancer
     Route: 048
     Dates: start: 20201216, end: 20201220
  62. OSIMERTINIB [Suspect]
     Active Substance: OSIMERTINIB
     Indication: EGFR gene mutation
     Route: 048
     Dates: start: 20201216, end: 20201220
  63. OSIMERTINIB [Suspect]
     Active Substance: OSIMERTINIB
     Indication: Non-small cell lung cancer
     Route: 048
     Dates: start: 20210212, end: 20210225
  64. OSIMERTINIB [Suspect]
     Active Substance: OSIMERTINIB
     Indication: EGFR gene mutation
     Route: 048
     Dates: start: 20210212, end: 20210225
  65. CARBOPLATIN [Suspect]
     Active Substance: CARBOPLATIN
     Indication: Non-small cell lung cancer
     Dosage: 5 AUC EVERY THREE WEEKS
     Route: 042
     Dates: start: 20201210, end: 20201210
  66. CARBOPLATIN [Suspect]
     Active Substance: CARBOPLATIN
     Indication: EGFR gene mutation
     Dosage: 5 AUC EVERY THREE WEEKS
     Route: 042
     Dates: start: 20201210, end: 20201210
  67. CARBOPLATIN [Suspect]
     Active Substance: CARBOPLATIN
     Indication: Non-small cell lung cancer
     Dosage: 5 AUC EVERY THREE WEEKS
     Route: 042
     Dates: start: 20201231, end: 20201231
  68. CARBOPLATIN [Suspect]
     Active Substance: CARBOPLATIN
     Indication: EGFR gene mutation
     Dosage: 5 AUC EVERY THREE WEEKS
     Route: 042
     Dates: start: 20201231, end: 20201231
  69. CARBOPLATIN [Suspect]
     Active Substance: CARBOPLATIN
     Indication: Non-small cell lung cancer
     Dosage: 5 AUC EVERY THREE WEEKS
     Route: 042
     Dates: start: 20210122, end: 20210122
  70. CARBOPLATIN [Suspect]
     Active Substance: CARBOPLATIN
     Indication: EGFR gene mutation
     Dosage: 5 AUC EVERY THREE WEEKS
     Route: 042
     Dates: start: 20210122, end: 20210122
  71. CARBOPLATIN [Suspect]
     Active Substance: CARBOPLATIN
     Indication: Non-small cell lung cancer
     Dosage: 5 AUC EVERY THREE WEEKS
     Route: 042
     Dates: start: 20210226, end: 20210226
  72. CARBOPLATIN [Suspect]
     Active Substance: CARBOPLATIN
     Indication: EGFR gene mutation
     Dosage: 5 AUC EVERY THREE WEEKS
     Route: 042
     Dates: start: 20210226, end: 20210226
  73. RANITIDINE [Concomitant]
     Active Substance: RANITIDINE
     Indication: Dyspepsia
     Dosage: 300.0MG AS REQUIRED
     Route: 048
     Dates: start: 20211220
  74. SODIUM CHLORIDE [Concomitant]
     Active Substance: SODIUM CHLORIDE
     Indication: Electrolyte depletion
     Dosage: 100.0ML ONCE/SINGLE ADMINISTRATION
     Route: 042
     Dates: start: 20211220, end: 20211220
  75. SODIUM CHLORIDE [Concomitant]
     Active Substance: SODIUM CHLORIDE
     Indication: Electrolyte depletion
     Dosage: 100.0ML ONCE/SINGLE ADMINISTRATION
     Route: 042
     Dates: start: 20220110, end: 20220110
  76. DEXAMETHASONE [Concomitant]
     Active Substance: DEXAMETHASONE
     Indication: Prophylaxis of nausea and vomiting
     Route: 048
     Dates: start: 20211221, end: 20211222
  77. DEXAMETHASONE [Concomitant]
     Active Substance: DEXAMETHASONE
     Indication: Prophylaxis of nausea and vomiting
     Route: 048
     Dates: start: 20220111, end: 20220112
  78. PANTOPRAZOLE [Concomitant]
     Active Substance: PANTOPRAZOLE
     Indication: Hyperchlorhydria
     Route: 048
     Dates: start: 20211221, end: 20211223
  79. PANTOPRAZOLE [Concomitant]
     Active Substance: PANTOPRAZOLE
     Indication: Hyperchlorhydria
     Route: 048
     Dates: start: 20220111, end: 20220113
  80. VITAMIN A-Z [Concomitant]
     Indication: Supportive care
     Route: 048
     Dates: start: 20210227
  81. T. MEGASTY [Concomitant]
     Indication: Decreased appetite
     Route: 048
     Dates: start: 20210409
  82. ECONORM SACHET [Concomitant]
     Indication: Diarrhoea
     Dosage: 1.00 PACKET AS REQUIRED
     Route: 048
     Dates: start: 20210430
  83. LOPERAMIDE [Concomitant]
     Active Substance: LOPERAMIDE
     Indication: Diarrhoea
     Dosage: 4.0MG AS REQUIRED
     Route: 048
     Dates: start: 20210723
  84. ACETAMINOPHEN [Concomitant]
     Active Substance: ACETAMINOPHEN
     Indication: Pain
     Dosage: 1.0G AS REQUIRED
     Route: 048
     Dates: start: 20201210
  85. SODA BICARBONATE GARGLE [Concomitant]
     Indication: Fatigue
     Dosage: 1.00 TEA SPOON THREE TIMES A DAY
     Route: 002
     Dates: start: 20201222
  86. SYRUP CREMAFFIN [Concomitant]
     Indication: Constipation
     Dosage: 2.00 TEA SPOON POHS
     Route: 048
     Dates: start: 20201222
  87. HEPARIN , BENZYL NICOTINATE [Concomitant]
     Indication: Inflammation
     Dosage: 1.00 IT IS USED AS LOCALLY AS REQUIRED
     Route: 061
     Dates: start: 20201210

REACTIONS (1)
  - Sepsis [Fatal]

NARRATIVE: CASE EVENT DATE: 20220115
